FAERS Safety Report 6104921-3 (Version None)
Quarter: 2009Q1

REPORT INFORMATION
  Report Type: 
  Country: None (occurrence: None)
  Receive Date: 20090306
  Receipt Date: 20090226
  Transmission Date: 20090719
  Serious: Yes (Hospitalization, Other)
  Sender: FDA-Public Use
  Company Number: US-AMGEN-QUU335910

PATIENT
  Age: 66 Year
  Sex: Female

DRUGS (3)
  1. ARANESP [Suspect]
     Indication: RENAL FAILURE CHRONIC
     Dates: start: 20080715
  2. CYTOXAN [Concomitant]
  3. PREDNISONE [Concomitant]

REACTIONS (2)
  - ANAEMIA [None]
  - SPINAL COMPRESSION FRACTURE [None]
